FAERS Safety Report 14189106 (Version 1)
Quarter: 2017Q4

REPORT INFORMATION
  Report Type: Spontaneous
  Country: US (occurrence: US)
  Receive Date: 20171115
  Receipt Date: 20171115
  Transmission Date: 20180321
  Serious: Yes (Other)
  Sender: FDA-Public Use
  Company Number: US-INSYS THERAPEUTICS, INC-INS201711-000653

PATIENT
  Age: 28 Year
  Sex: Male

DRUGS (2)
  1. CANNABIS [Concomitant]
     Active Substance: CANNABIS SATIVA SUBSP. INDICA TOP
  2. FENTANYL. [Suspect]
     Active Substance: FENTANYL
     Indication: PRODUCT USED FOR UNKNOWN INDICATION

REACTIONS (8)
  - Toxic leukoencephalopathy [Unknown]
  - Hypoglycaemia [Unknown]
  - Loss of consciousness [Unknown]
  - Liver injury [Unknown]
  - Acute kidney injury [Unknown]
  - Myocardial stunning [Unknown]
  - Rhabdomyolysis [Unknown]
  - Overdose [Unknown]
